FAERS Safety Report 13592266 (Version 1)
Quarter: 2017Q2

REPORT INFORMATION
  Report Type: Spontaneous
  Country: FR (occurrence: FR)
  Receive Date: 20170529
  Receipt Date: 20170529
  Transmission Date: 20170830
  Serious: Yes (Other)
  Sender: FDA-Public Use
  Company Number: FR-MYLANLABS-2017M1031547

PATIENT

DRUGS (2)
  1. LEPONEX [Suspect]
     Active Substance: CLOZAPINE
     Indication: PRODUCT USED FOR UNKNOWN INDICATION
     Dosage: UNK
  2. LEPONEX [Suspect]
     Active Substance: CLOZAPINE
     Dosage: UNK

REACTIONS (10)
  - Troponin increased [Not Recovered/Not Resolved]
  - Renal failure [Unknown]
  - Therapy cessation [Recovered/Resolved]
  - Eosinophil count increased [Recovered/Resolved]
  - Disease recurrence [Unknown]
  - Aggression [Unknown]
  - C-reactive protein abnormal [Unknown]
  - Refusal of treatment by patient [Unknown]
  - Condition aggravated [Unknown]
  - Tachycardia [Unknown]
